FAERS Safety Report 4559191-4 (Version None)
Quarter: 2005Q1

REPORT INFORMATION
  Report Type: 
  Country: None (occurrence: None)
  Receive Date: 20050124
  Receipt Date: 20050111
  Transmission Date: 20050727
  Serious: Yes (Other)
  Sender: FDA-Public Use
  Company Number: GR-JNJFOC-20050102377

PATIENT
  Sex: Male

DRUGS (1)
  1. ALOPERIDIN [Suspect]
     Indication: SCHIZOPHRENIA
     Route: 049

REACTIONS (2)
  - PANIC DISORDER [None]
  - PSYCHOMOTOR HYPERACTIVITY [None]
